FAERS Safety Report 5940597-3 (Version None)
Quarter: 2008Q4

REPORT INFORMATION
  Report Type: 
  Country: None (occurrence: None)
  Receive Date: 20081104
  Receipt Date: 20081024
  Transmission Date: 20090506
  Serious: Yes (Other)
  Sender: FDA-Public Use
  Company Number: US-ROCHE-593758

PATIENT
  Sex: Male

DRUGS (1)
  1. KLONOPIN [Suspect]
     Indication: PANIC REACTION
     Dosage: PATIENT RECEIVED HALF A 0.5 MG TABLET
     Route: 065

REACTIONS (1)
  - GLAUCOMA [None]
